FAERS Safety Report 15426487 (Version 1)
Quarter: 2018Q3

REPORT INFORMATION
  Report Type: Spontaneous
  Country: US (occurrence: US)
  Receive Date: 20180925
  Receipt Date: 20180925
  Transmission Date: 20181010
  Serious: No
  Sender: FDA-Public Use
  Company Number: US-INDIVIOR LIMITED-INDV-105245-2017

PATIENT

DRUGS (2)
  1. BUPRENORPHINE/NALOXONE BRAND UNSPECIFIED [Suspect]
     Active Substance: BUPRENORPHINE\NALOXONE
     Dosage: 2.4MG PER DAY (CUTTING)
     Route: 065
  2. BUPRENORPHINE/NALOXONE BRAND UNSPECIFIED [Suspect]
     Active Substance: BUPRENORPHINE\NALOXONE
     Indication: PRODUCT USED FOR UNKNOWN INDICATION
     Dosage: 6.12MG PER DAY (CUTTING)
     Route: 065
     Dates: start: 2015

REACTIONS (2)
  - Blood bilirubin increased [Unknown]
  - Gallbladder disorder [Unknown]
